FAERS Safety Report 21057832 (Version 1)
Quarter: 2022Q3

REPORT INFORMATION
  Report Type: Spontaneous
  Country: DE (occurrence: DE)
  Receive Date: 20220708
  Receipt Date: 20220708
  Transmission Date: 20221027
  Serious: Yes (Hospitalization, Other)
  Sender: FDA-Public Use
  Company Number: DE-JNJFOC-20220647418

PATIENT
  Age: 30 Year
  Sex: Male

DRUGS (7)
  1. RISPERIDONE [Suspect]
     Active Substance: RISPERIDONE
     Indication: Substance-induced psychotic disorder
     Dosage: 4 MILLIGRAM
     Route: 048
     Dates: start: 20201205, end: 20201207
  2. RISPERIDONE [Suspect]
     Active Substance: RISPERIDONE
     Dosage: 3 MILLIGRAM
     Route: 048
     Dates: start: 20201208, end: 20201208
  3. RISPERIDONE [Suspect]
     Active Substance: RISPERIDONE
     Dosage: 2 MILLIGRAM
     Route: 048
     Dates: start: 20201209, end: 20201209
  4. DIAZEPAM [Suspect]
     Active Substance: DIAZEPAM
     Indication: Product used for unknown indication
     Dosage: 20 MILLIGRAM
     Route: 048
     Dates: start: 20201208, end: 20201215
  5. DIAZEPAM [Suspect]
     Active Substance: DIAZEPAM
     Dosage: 30 MILLIGRAM
     Route: 048
     Dates: start: 20201205
  6. DIAZEPAM [Suspect]
     Active Substance: DIAZEPAM
     Dosage: 50 MILLIGRAM
     Route: 048
     Dates: start: 20201206
  7. DIAZEPAM [Suspect]
     Active Substance: DIAZEPAM
     Dosage: 25 MILLIGRAM
     Route: 048
     Dates: start: 20201207

REACTIONS (2)
  - Parkinsonism [Recovered/Resolved]
  - Treatment noncompliance [Unknown]

NARRATIVE: CASE EVENT DATE: 20201208
